FAERS Safety Report 7381173-8 (Version None)
Quarter: 2011Q1

REPORT INFORMATION
  Report Type: 
  Country: None (occurrence: None)
  Receive Date: 20110329
  Receipt Date: 20110324
  Transmission Date: 20110831
  Serious: Yes (Hospitalization)
  Sender: FDA-Public Use
  Company Number: CA-ABBOTT-11P-028-0714459-00

PATIENT
  Sex: Male
  Weight: 90.8 kg

DRUGS (4)
  1. HUMIRA [Suspect]
     Indication: PSORIATIC ARTHROPATHY
     Route: 058
     Dates: start: 20110214
  2. METHOTREXATE [Concomitant]
     Indication: ARTHRITIS
     Route: 058
     Dates: start: 20110214
  3. APO-METRONIDAZOLE [Concomitant]
     Indication: APPENDICITIS PERFORATED
     Route: 048
     Dates: start: 20110315, end: 20110321
  4. PLAQUENIL [Concomitant]
     Indication: ARTHRITIS
     Route: 048
     Dates: start: 19960101

REACTIONS (3)
  - APPENDICITIS PERFORATED [None]
  - NAUSEA [None]
  - MIGRAINE [None]
